FAERS Safety Report 19104709 (Version 1)
Quarter: 2021Q2

REPORT INFORMATION
  Report Type: Spontaneous
  Country: US (occurrence: US)
  Receive Date: 20210408
  Receipt Date: 20210408
  Transmission Date: 20210717
  Serious: Yes (Hospitalization, Other)
  Sender: FDA-Public Use
  Company Number: US-ABBVIE-21K-163-3843564-00

PATIENT
  Age: 63 Year
  Sex: Female
  Weight: 99.88 kg

DRUGS (6)
  1. TRILIPIX [Suspect]
     Active Substance: FENOFIBRIC ACID
     Indication: HYPERTRIGLYCERIDAEMIA
     Route: 048
     Dates: start: 2009, end: 20210327
  2. XANAX [Concomitant]
     Active Substance: ALPRAZOLAM
     Indication: PANIC ATTACK
  3. TRILIPIX [Suspect]
     Active Substance: FENOFIBRIC ACID
     Indication: HYPERLIPIDAEMIA
  4. VITAMIN D3 [Concomitant]
     Active Substance: CHOLECALCIFEROL
     Indication: SUPPLEMENTATION THERAPY
  5. LANTUS [Concomitant]
     Active Substance: INSULIN GLARGINE
     Indication: DIABETES MELLITUS
  6. BABY ASPIRIN [Concomitant]
     Active Substance: ASPIRIN
     Indication: THROMBOSIS PROPHYLAXIS

REACTIONS (17)
  - Pulmonary mass [Unknown]
  - Dyspnoea [Recovered/Resolved]
  - Arthralgia [Not Recovered/Not Resolved]
  - Knee arthroplasty [Recovered/Resolved]
  - Abdominal pain lower [Recovering/Resolving]
  - Renal injury [Recovered/Resolved]
  - Proteinuria [Unknown]
  - Gait disturbance [Not Recovered/Not Resolved]
  - Meniscus injury [Recovered/Resolved]
  - Injury [Unknown]
  - Coronary artery occlusion [Not Recovered/Not Resolved]
  - Hypersomnia [Unknown]
  - Fatigue [Not Recovered/Not Resolved]
  - Gastrointestinal haemorrhage [Unknown]
  - Chest pain [Not Recovered/Not Resolved]
  - Tachycardia [Not Recovered/Not Resolved]
  - Arteriosclerosis coronary artery [Unknown]

NARRATIVE: CASE EVENT DATE: 2009
